FAERS Safety Report 16730577 (Version 1)
Quarter: 2019Q3

REPORT INFORMATION
  Report Type: Spontaneous
  Country: US (occurrence: US)
  Receive Date: 20190705
  Receipt Date: 20190705
  Transmission Date: 20191005
  Serious: No
  Sender: FDA-Public Use
  Company Number: None

PATIENT
  Age: 50 Year
  Sex: Male

DRUGS (2)
  1. LURASIDONE [Suspect]
     Active Substance: LURASIDONE
     Indication: MANIA
     Dosage: MG
     Route: 048
     Dates: start: 20190311, end: 20190425
  2. LURASIDONE [Suspect]
     Active Substance: LURASIDONE
     Indication: IMPULSIVE BEHAVIOUR
     Dosage: MG
     Route: 048
     Dates: start: 20190311, end: 20190425

REACTIONS (1)
  - Flushing [None]

NARRATIVE: CASE EVENT DATE: 20190603
